FAERS Safety Report 5114024-2 (Version None)
Quarter: 2006Q3

REPORT INFORMATION
  Report Type: 
  Country: None (occurrence: None)
  Receive Date: 20060921
  Receipt Date: 20060823
  Transmission Date: 20061208
  Serious: Yes (Death, Other)
  Sender: FDA-Public Use
  Company Number: 2006US-03770

PATIENT
  Age: 2 Year

DRUGS (1)
  1. ISOTRETINOIN [Suspect]

REACTIONS (3)
  - DISEASE PROGRESSION [None]
  - NEUROBLASTOMA [None]
  - OFF LABEL USE [None]
